FAERS Safety Report 4695559-3 (Version None)
Quarter: 2005Q2

REPORT INFORMATION
  Report Type: 
  Country: None (occurrence: None)
  Receive Date: 20050523
  Receipt Date: 20050512
  Transmission Date: 20051028
  Serious: Yes (Other)
  Sender: FDA-Public Use
  Company Number: 2005PK00836

PATIENT
  Age: 14 Year
  Sex: Female

DRUGS (4)
  1. PROPOFOL [Suspect]
     Indication: ANXIETY DISORDER DUE TO A GENERAL MEDICAL CONDITION
     Route: 042
     Dates: start: 20050201
  2. DEPAKENE [Suspect]
     Indication: EPILEPSY
     Route: 042
  3. LIORESAL [Concomitant]
     Route: 042
  4. DORMICUM [Concomitant]
     Route: 042

REACTIONS (3)
  - AGITATION [None]
  - DRUG WITHDRAWAL SYNDROME [None]
  - HYPERAMMONAEMIA [None]
